FAERS Safety Report 8078609-6 (Version None)
Quarter: 2012Q1

REPORT INFORMATION
  Report Type: 
  Country: None (occurrence: None)
  Receive Date: 20120124
  Receipt Date: 20120111
  Transmission Date: 20120608
  Serious: Yes (Hospitalization)
  Sender: FDA-Public Use
  Company Number: 1000027243

PATIENT
  Age: 69 Year
  Sex: Male

DRUGS (6)
  1. SPIRIVA HANDIHALER (TIOTROPIUM BROMIDE) (TIOTROPIUM BROMIDE) [Concomitant]
  2. FORADIL HFA (FORMOTEROL FUMARATE) (FORMOTEROL FUMARATE) [Concomitant]
  3. AXOTIDE (FLUTICASONE PROPIONATE) (FLUTICASONE PROPIONATE) [Concomitant]
  4. VENTOLIN (SALBUTAMOL) (SALBUTAMOL) [Concomitant]
  5. ESCITALOPRAM OXALATE [Suspect]
     Dosage: 20 MG (20 MG, 1 IN 1 D), ORAL
     Route: 048
     Dates: start: 20111203, end: 20111226
  6. SURMONTIL (TRIMIPRAMINE) (4 PERCENT, DROPS) (TRIMIPRAMINE) [Concomitant]

REACTIONS (4)
  - CHRONIC OBSTRUCTIVE PULMONARY DISEASE [None]
  - BLOOD CREATINE PHOSPHOKINASE INCREASED [None]
  - CONDITION AGGRAVATED [None]
  - INFECTION [None]
